FAERS Safety Report 24105558 (Version 1)
Quarter: 2024Q3

REPORT INFORMATION
  Report Type: Spontaneous
  Country: GR (occurrence: GR)
  Receive Date: 20240717
  Receipt Date: 20240717
  Transmission Date: 20241017
  Serious: Yes (Other)
  Sender: MERCK
  Company Number: GR-009507513-2407GRC009036

PATIENT
  Sex: Male

DRUGS (1)
  1. INVANZ [Suspect]
     Active Substance: ERTAPENEM SODIUM
     Dosage: UNK
     Route: 030

REACTIONS (2)
  - Nephrectomy [Unknown]
  - Incorrect route of product administration [Unknown]
